FAERS Safety Report 8572543-0 (Version None)
Quarter: 2012Q3

REPORT INFORMATION
  Report Type: 
  Country: None (occurrence: None)
  Receive Date: 20120806
  Receipt Date: 20120725
  Transmission Date: 20120928
  Serious: Yes (Other)
  Sender: FDA-Public Use
  Company Number: DE-ROCHE-1090509

PATIENT
  Sex: Male

DRUGS (1)
  1. VALCYTE [Suspect]
     Indication: ANTIVIRAL PROPHYLAXIS

REACTIONS (1)
  - RENAL HAEMORRHAGE [None]
